FAERS Safety Report 10952526 (Version 1)
Quarter: 2015Q1

REPORT INFORMATION
  Report Type: Spontaneous
  Country: US (occurrence: None)
  Receive Date: 20150324
  Receipt Date: 20150324
  Transmission Date: 20150721
  Serious: Yes (Other)
  Sender: FDA-Public Use
  Company Number: None

PATIENT
  Age: 57 Year
  Sex: Female
  Weight: 101.61 kg

DRUGS (15)
  1. LEVOTHYROXINE [Concomitant]
     Active Substance: LEVOTHYROXINE
  2. DULOXETINE [Concomitant]
     Active Substance: DULOXETINE
  3. XIFAXAN [Concomitant]
     Active Substance: RIFAXIMIN
  4. SOVALDI [Concomitant]
     Active Substance: SOFOSBUVIR
  5. GABAPENTIN. [Concomitant]
     Active Substance: GABAPENTIN
  6. QUETIAPINE FUMARATE. [Concomitant]
     Active Substance: QUETIAPINE FUMARATE
  7. MONTELUKAST [Concomitant]
     Active Substance: MONTELUKAST SODIUM
  8. COLGATE GEL-JAM [Concomitant]
  9. PANTOPRAZOLE [Concomitant]
     Active Substance: PANTOPRAZOLE SODIUM
  10. XIFAXAN [Suspect]
     Active Substance: RIFAXIMIN
     Dosage: 2 PILLS, TAKEN BY MOUTH;
     Dates: start: 20150110, end: 20150323
  11. RIBOFLAVIN [Concomitant]
     Active Substance: RIBOFLAVIN
  12. BUPROPION HAL SR [Concomitant]
  13. LISINOPRIL. [Concomitant]
     Active Substance: LISINOPRIL
  14. ALIVE [Concomitant]
  15. WARFARIN SODIUM. [Concomitant]
     Active Substance: WARFARIN SODIUM

REACTIONS (3)
  - Tooth abscess [None]
  - Tooth loss [None]
  - Dental caries [None]

NARRATIVE: CASE EVENT DATE: 20150305
